FAERS Safety Report 20162595 (Version 1)
Quarter: 2021Q4

REPORT INFORMATION
  Report Type: Spontaneous
  Country: AR (occurrence: AR)
  Receive Date: 20211208
  Receipt Date: 20211208
  Transmission Date: 20220303
  Serious: Yes (Other)
  Sender: FDA-Public Use
  Company Number: AR-BIOMARINAP-AR-2021-139963

PATIENT
  Age: 6 Year
  Sex: Male

DRUGS (4)
  1. BRINEURA [Suspect]
     Active Substance: CERLIPONASE ALFA
     Indication: Neuronal ceroid lipofuscinosis
     Dosage: 300 MILLIGRAM, EVERY 15 DAYS
     Route: 020
     Dates: start: 20170623
  2. VALPROIC ACID [Concomitant]
     Active Substance: VALPROIC ACID
     Indication: Product used for unknown indication
  3. LEVETIRACETAM RICHET [Concomitant]
     Indication: Product used for unknown indication
  4. CLONAZEPAM CEVALLOS [Concomitant]
     Indication: Product used for unknown indication

REACTIONS (1)
  - CNS ventriculitis [Unknown]

NARRATIVE: CASE EVENT DATE: 20190120
